FAERS Safety Report 15779312 (Version 4)
Quarter: 2021Q3

REPORT INFORMATION
  Report Type: Spontaneous
  Country: CA (occurrence: CA)
  Receive Date: 20190101
  Receipt Date: 20210730
  Transmission Date: 20211014
  Serious: Yes (Death, Hospitalization, Other)
  Sender: FDA-Public Use
  Company Number: CA-ICU MEDICAL, INC.-ICU2018CA00234

PATIENT
  Age: 31 Year
  Sex: Female

DRUGS (22)
  1. 5% DEXTROSE INJECTION [Suspect]
     Active Substance: DEXTROSE
     Indication: PRODUCT USED FOR UNKNOWN INDICATION
     Dosage: 50 MILLILITER
     Route: 042
  2. PHENYTOIN. [Suspect]
     Active Substance: PHENYTOIN
     Indication: STATUS EPILEPTICUS
     Dosage: 1 GRAM
     Route: 065
  3. THIOPENTAL [Suspect]
     Active Substance: THIOPENTAL
     Indication: STATUS EPILEPTICUS
     Dosage: 250.0 MILLIGRAM
     Route: 042
  4. CALCIUM CHLORIDE. [Suspect]
     Active Substance: CALCIUM CHLORIDE
     Indication: PRODUCT USED FOR UNKNOWN INDICATION
     Dosage: 1 GRAM
     Route: 065
  5. DIAZEPAM. [Suspect]
     Active Substance: DIAZEPAM
     Indication: STATUS EPILEPTICUS
     Dosage: 10 MILLIGRAM
     Route: 065
  6. SODIUM CITRATE. [Suspect]
     Active Substance: SODIUM CITRATE
     Indication: PROPHYLAXIS
     Dosage: 30 MILLILITER
     Route: 048
  7. SUCCINYLCHOLINE CHLORIDE. [Suspect]
     Active Substance: SUCCINYLCHOLINE CHLORIDE
     Indication: ENDOTRACHEAL INTUBATION
     Dosage: 100.0 MILLIGRAM
     Route: 042
  8. ATIVAN [Suspect]
     Active Substance: LORAZEPAM
     Indication: BIPOLAR DISORDER
  9. MAGNESIUM SULFATE. [Suspect]
     Active Substance: MAGNESIUM SULFATE
     Indication: STATUS EPILEPTICUS
     Dosage: 2 GRAM
     Route: 065
  10. METOCLOPRAMIDE. [Suspect]
     Active Substance: METOCLOPRAMIDE
     Indication: PROPHYLAXIS
     Dosage: 10.0 MILLIGRAM
     Route: 042
  11. PAROXETINE. [Suspect]
     Active Substance: PAROXETINE
     Indication: BIPOLAR DISORDER
     Route: 065
  12. PROPOFOL. [Suspect]
     Active Substance: PROPOFOL
     Indication: STATUS EPILEPTICUS
     Dosage: 200.0 MILLIGRAM, Q1HR
     Route: 042
  13. DOPAMINE HYDROCHLORIDE AND DEXTROSE [Suspect]
     Active Substance: DOPAMINE HYDROCHLORIDE
     Indication: HYPOTENSION
     Route: 042
  14. PHENYLEPHRINE [Suspect]
     Active Substance: PHENYLEPHRINE HYDROCHLORIDE
     Indication: HYPOTENSION
     Route: 047
  15. ATIVAN [Suspect]
     Active Substance: LORAZEPAM
     Indication: STATUS EPILEPTICUS
     Dosage: 2.0 MILLIGRAM
     Route: 065
  16. MAGNESIUM SULFATE. [Suspect]
     Active Substance: MAGNESIUM SULFATE
     Dosage: 4 GRAM
     Route: 065
  17. THIOPENTAL [Suspect]
     Active Substance: THIOPENTAL
     Indication: ENDOTRACHEAL INTUBATION
     Dosage: 100 MILLIGRAM
     Route: 042
  18. THIOPENTAL [Suspect]
     Active Substance: THIOPENTAL
     Indication: SEIZURE
     Dosage: 300 MILLIGRAM, Q1HR
     Route: 042
  19. SUCCINYLCHOLINE                    /00057701/ [Suspect]
     Active Substance: SUCCINYLCHOLINE
     Indication: ENDOTRACHEAL INTUBATION
     Dosage: 100 MILLIGRAM
  20. MIDAZOLAM. [Suspect]
     Active Substance: MIDAZOLAM
     Indication: STATUS EPILEPTICUS
     Dosage: 3.0 MILLIGRAM
     Route: 065
  21. LORAZEPAM. [Suspect]
     Active Substance: LORAZEPAM
     Indication: STATUS EPILEPTICUS
     Dosage: 2 MILLIGRAM
  22. DOPAMINE HCL [Suspect]
     Active Substance: DOPAMINE HYDROCHLORIDE
     Indication: PRODUCT USED FOR UNKNOWN INDICATION
     Route: 042

REACTIONS (21)
  - Blood bicarbonate decreased [Fatal]
  - Blood magnesium decreased [Fatal]
  - Blood pH decreased [Fatal]
  - Status epilepticus [Recovered/Resolved]
  - Blood calcium decreased [Fatal]
  - Encephalopathy [Fatal]
  - Drug ineffective [Fatal]
  - Hypotension [Fatal]
  - Left ventricular dysfunction [Fatal]
  - Off label use [Fatal]
  - Clonus [Recovered/Resolved]
  - Loss of consciousness [Fatal]
  - Maternal exposure during pregnancy [Fatal]
  - Renal ischaemia [Fatal]
  - PO2 increased [Fatal]
  - Electroencephalogram abnormal [Recovered/Resolved]
  - Diabetes insipidus [Fatal]
  - Oxygen saturation abnormal [Fatal]
  - PCO2 increased [Fatal]
  - Seizure [Recovered/Resolved]
  - Renal impairment [Fatal]
